FAERS Safety Report 6243614-9 (Version None)
Quarter: 2009Q2

REPORT INFORMATION
  Report Type: 
  Country: None (occurrence: None)
  Receive Date: 20090624
  Receipt Date: 20090616
  Transmission Date: 20091009
  Serious: Yes (Death)
  Sender: FDA-Public Use
  Company Number: US-PFIZER INC-2009222325

PATIENT
  Sex: Male

DRUGS (15)
  1. SUTENT [Suspect]
     Indication: RENAL CELL CARCINOMA
     Dosage: 25 MG, 4 WEEKS ON AND 2 WEEKS OFF
     Dates: start: 20080201
  2. OMEPRAZOLE [Concomitant]
  3. SENOKOT [Concomitant]
  4. COLACE [Concomitant]
  5. DECADRON [Concomitant]
  6. NEURONTIN [Concomitant]
  7. MULTI-VITAMINS [Concomitant]
  8. OXYCODONE [Concomitant]
  9. DURAGESIC-100 [Concomitant]
  10. CLONIDINE [Concomitant]
  11. NYSTATIN [Concomitant]
  12. LANTUS [Concomitant]
  13. SITAGLIPTIN [Concomitant]
  14. GLIPIZIDE [Concomitant]
  15. DILAUDID [Concomitant]

REACTIONS (2)
  - DISEASE PROGRESSION [None]
  - RENAL CELL CARCINOMA [None]
